FAERS Safety Report 25546187 (Version 1)
Quarter: 2025Q3

REPORT INFORMATION
  Report Type: Spontaneous
  Country: GB (occurrence: GB)
  Receive Date: 20250713
  Receipt Date: 20250713
  Transmission Date: 20251020
  Serious: Yes (Other)
  Sender: AUROBINDO
  Company Number: GB-MHRA-MED-202506281743072770-TVDFM

PATIENT
  Age: 35 Year
  Sex: Female
  Weight: 103 kg

DRUGS (7)
  1. CIPROFLOXACIN [Suspect]
     Active Substance: CIPROFLOXACIN
     Indication: Kidney infection
     Dosage: 500 MILLIGRAM, TWO TIMES A DAY (.AM AND PM)
     Route: 065
     Dates: start: 20250627, end: 20250628
  2. FLUDROCORTISONE [Concomitant]
     Active Substance: FLUDROCORTISONE
     Indication: Postural orthostatic tachycardia syndrome
     Route: 065
  3. CITALOPRAM [Concomitant]
     Active Substance: CITALOPRAM
     Indication: Pain
     Route: 065
  4. TOPIRAMATE [Concomitant]
     Active Substance: TOPIRAMATE
     Indication: Migraine
     Route: 065
  5. ESTRADERM [Concomitant]
     Active Substance: ESTRADIOL
     Indication: Hormone replacement therapy
     Route: 065
  6. ESTRADERM [Concomitant]
     Active Substance: ESTRADIOL
     Indication: Hysterectomy
  7. SUMATRIPTAN [Concomitant]
     Active Substance: SUMATRIPTAN
     Indication: Migraine
     Route: 065

REACTIONS (8)
  - Swelling face [Unknown]
  - Rash [Recovering/Resolving]
  - Headache [Recovering/Resolving]
  - Skin burning sensation [Recovering/Resolving]
  - Malaise [Unknown]
  - Erythema [Unknown]
  - Feeling hot [Unknown]
  - Drug hypersensitivity [Unknown]

NARRATIVE: CASE EVENT DATE: 20250627
